FAERS Safety Report 4389328-1 (Version None)
Quarter: 2004Q3

REPORT INFORMATION
  Report Type: 
  Country: None (occurrence: None)
  Receive Date: 20040702
  Receipt Date: 20040628
  Transmission Date: 20050211
  Serious: Yes (Hospitalization)
  Sender: FDA-Public Use
  Company Number: FR-ROCHE-372222

PATIENT
  Age: 39 Year
  Sex: Male
  Weight: 58 kg

DRUGS (10)
  1. RIVOTRIL [Suspect]
     Indication: DRUG USE FOR UNKNOWN INDICATION
     Route: 048
     Dates: start: 19991104
  2. VIREAD [Suspect]
     Indication: DRUG USE FOR UNKNOWN INDICATION
     Route: 048
     Dates: start: 20000721
  3. ZIAGEN [Suspect]
     Indication: DRUG USE FOR UNKNOWN INDICATION
     Route: 048
     Dates: start: 20020806
  4. VIDEX [Suspect]
     Indication: DRUG USE FOR UNKNOWN INDICATION
     Route: 048
     Dates: start: 20020806
  5. ASPIRIN [Concomitant]
  6. PREVISCAN [Concomitant]
  7. COVERSYL [Concomitant]
  8. MOPRAL [Concomitant]
  9. SECTRAL [Concomitant]
  10. PRAVASTATIN [Concomitant]

REACTIONS (3)
  - INTRACARDIAC THROMBUS [None]
  - MYOCARDIAL INFARCTION [None]
  - PERICARDIAL EFFUSION [None]
